FAERS Safety Report 6789754-7 (Version None)
Quarter: 2010Q2

REPORT INFORMATION
  Report Type: 
  Country: None (occurrence: None)
  Receive Date: 20100624
  Receipt Date: 20100622
  Transmission Date: 20101027
  Serious: Yes (Hospitalization)
  Sender: FDA-Public Use
  Company Number: DE-WYE-G06290610

PATIENT
  Sex: Male
  Weight: 87 kg

DRUGS (2)
  1. TORISEL [Suspect]
     Indication: RENAL CANCER METASTATIC
     Route: 042
     Dates: start: 20090106, end: 20090224
  2. TAVEGIL [Concomitant]
     Indication: PREMEDICATION
     Route: 042
     Dates: start: 20090106

REACTIONS (2)
  - OEDEMA GENITAL [None]
  - OEDEMA PERIPHERAL [None]
